FAERS Safety Report 6404638-1 (Version None)
Quarter: 2009Q4

REPORT INFORMATION
  Report Type: 
  Country: None (occurrence: None)
  Receive Date: 20091016
  Receipt Date: 20091006
  Transmission Date: 20100525
  Serious: Yes (Other)
  Sender: FDA-Public Use
  Company Number: FR-ELI_LILLY_AND_COMPANY-FR200909002902

PATIENT
  Age: 36 Year
  Sex: Female
  Weight: 60 kg

DRUGS (4)
  1. CYMBALTA [Suspect]
     Indication: DEPRESSION
     Dosage: 60 MG, DAILY (1/D)
     Route: 048
     Dates: start: 20090616, end: 20090824
  2. NEULEPTIL [Concomitant]
     Indication: ANXIETY
     Dosage: 40 MG, DAILY (1/D)
     Route: 048
     Dates: start: 20050101
  3. ATARAX [Concomitant]
     Indication: ANXIETY
     Dosage: 75 MG, DAILY (1/D)
     Route: 048
     Dates: start: 20070101
  4. PRAZEPAM [Concomitant]
     Indication: ANXIETY
     Dosage: 30 MG, DAILY (1/D)
     Route: 048
     Dates: start: 20050101

REACTIONS (1)
  - KLEPTOMANIA [None]
